FAERS Safety Report 9425581 (Version 1)
Quarter: 2013Q3

REPORT INFORMATION
  Report Type: Spontaneous
  Country: US (occurrence: US)
  Receive Date: 20130729
  Receipt Date: 20130729
  Transmission Date: 20140515
  Serious: No
  Sender: FDA-Public Use
  Company Number: US-MYLANLABS-2013S1004475

PATIENT
  Age: 51 Year
  Sex: Female

DRUGS (3)
  1. LEVOTHYROXINE SODIUM TABLETS, USP [Suspect]
     Indication: HYPOTHYROIDISM
     Route: 048
     Dates: start: 2008, end: 20121212
  2. FENTANYL [Suspect]
     Indication: PAIN
     Dosage: Q48HR
     Route: 062
     Dates: start: 20121121, end: 20131106
  3. FENTANYL [Suspect]
     Indication: PAIN
     Dosage: Q48H
     Route: 062
     Dates: start: 20130207

REACTIONS (11)
  - Drug interaction [Not Recovered/Not Resolved]
  - Alopecia [Not Recovered/Not Resolved]
  - Eyelid oedema [Not Recovered/Not Resolved]
  - Salivary hypersecretion [Not Recovered/Not Resolved]
  - Fatigue [Not Recovered/Not Resolved]
  - Weight increased [Not Recovered/Not Resolved]
  - Application site warmth [Not Recovered/Not Resolved]
  - Application site erythema [Not Recovered/Not Resolved]
  - Application site pruritus [Not Recovered/Not Resolved]
  - Application site vesicles [Not Recovered/Not Resolved]
  - Application site reaction [Not Recovered/Not Resolved]
